FAERS Safety Report 4303837-2 (Version None)
Quarter: 2004Q1

REPORT INFORMATION
  Report Type: 
  Country: None (occurrence: None)
  Receive Date: 20040224
  Receipt Date: 20040224
  Transmission Date: 20041129
  Serious: Yes (Other)
  Sender: FDA-Public Use
  Company Number: None

PATIENT
  Age: 73 Year
  Sex: Male
  Weight: 81.6475 kg

DRUGS (3)
  1. ZOCOR [Suspect]
     Indication: BLOOD CHOLESTEROL INCREASED
     Dosage: PO AT NIGHT
     Route: 048
  2. HYPERTENSION [Concomitant]
  3. URINATING (PROSTATE) [Concomitant]

REACTIONS (6)
  - AMNESIA [None]
  - CHEST PAIN [None]
  - DRY SKIN [None]
  - LOSS OF LIBIDO [None]
  - NEUROPATHY [None]
  - THOUGHT BLOCKING [None]
